FAERS Safety Report 8421107-8 (Version None)
Quarter: 2012Q2

REPORT INFORMATION
  Report Type: 
  Country: None (occurrence: None)
  Receive Date: 20120608
  Receipt Date: 20120525
  Transmission Date: 20120825
  Serious: Yes (Other)
  Sender: FDA-Public Use
  Company Number: DE-JNJFOC-20120520893

PATIENT

DRUGS (2)
  1. AMPHETAMINE SULFATE [Suspect]
     Indication: CENTRAL NERVOUS SYSTEM STIMULATION
     Route: 065
  2. METHYLPHENIDATE HCL [Suspect]
     Indication: CENTRAL NERVOUS SYSTEM STIMULATION
     Route: 048

REACTIONS (6)
  - TACHYCARDIA [None]
  - INSOMNIA [None]
  - DRUG ABUSE [None]
  - ANXIETY [None]
  - TREMOR [None]
  - CENTRAL NERVOUS SYSTEM STIMULATION [None]
